FAERS Safety Report 7468099-6 (Version None)
Quarter: 2011Q2

REPORT INFORMATION
  Report Type: 
  Country: None (occurrence: None)
  Receive Date: 20110509
  Receipt Date: 20110323
  Transmission Date: 20111010
  Serious: Yes (Hospitalization)
  Sender: FDA-Public Use
  Company Number: US-ALEXION PHARMACEUTICALS INC.-A201100285

PATIENT
  Sex: Male

DRUGS (5)
  1. EXJADE [Concomitant]
  2. DESFERAL                           /00062903/ [Concomitant]
     Indication: IRON OVERLOAD
     Dosage: UNK
  3. SOLIRIS [Suspect]
     Indication: PAROXYSMAL NOCTURNAL HAEMOGLOBINURIA
     Dosage: UNK
     Route: 042
  4. CYCLOSPORINE [Suspect]
  5. PREDNISONE [Suspect]
     Indication: PAROXYSMAL NOCTURNAL HAEMOGLOBINURIA
     Dosage: UNK

REACTIONS (15)
  - ASTHENIA [None]
  - HAEMOGLOBIN DECREASED [None]
  - BLINDNESS [None]
  - ANAEMIA [None]
  - SERUM FERRITIN INCREASED [None]
  - LEUKOPENIA [None]
  - BLOOD LACTATE DEHYDROGENASE INCREASED [None]
  - RASH GENERALISED [None]
  - INFECTION [None]
  - BLOOD GLUCOSE INCREASED [None]
  - RENAL FAILURE [None]
  - DEAFNESS [None]
  - SWELLING FACE [None]
  - PULMONARY CONGESTION [None]
  - DEHYDRATION [None]
